FAERS Safety Report 4951977-7 (Version None)
Quarter: 2006Q1

REPORT INFORMATION
  Report Type: 
  Country: None (occurrence: None)
  Receive Date: 20060322
  Receipt Date: 20060322
  Transmission Date: 20060701
  Serious: Yes (Other)
  Sender: FDA-Public Use
  Company Number: None

PATIENT
  Sex: Female
  Weight: 125.6464 kg

DRUGS (2)
  1. DILTIAZEM HCL [Suspect]
     Indication: HYPERTENSION
     Dosage: 240 MG QD
     Dates: start: 19990101
  2. VERAPAMIL [Suspect]
     Indication: HYPERTENSION
     Dosage: 240 MG QD
     Dates: end: 20000101

REACTIONS (5)
  - CONSTIPATION [None]
  - FATIGUE [None]
  - HYPERHIDROSIS [None]
  - NAUSEA [None]
  - PALPITATIONS [None]
